FAERS Safety Report 8517948 (Version 2)
Quarter: 2012Q4

REPORT INFORMATION
  Report Type: 
  Country: US (occurrence: US)
  Receive Date: 20120417
  Receipt Date: 20121120
  Transmission Date: 20130627
  Serious: Yes (Life-Threatening)
  Sender: FDA-Public Use
  Company Number: US-ASTRAZENECA-2011SE33365

PATIENT
  Age: 48 Year
  Sex: Female

DRUGS (1)
  1. NEXIUM [Suspect]
     Route: 048

REACTIONS (3)
  - Anaphylactic shock [Unknown]
  - Aphagia [Unknown]
  - Intentional drug misuse [Unknown]
